FAERS Safety Report 15214560 (Version 4)
Quarter: 2018Q4

REPORT INFORMATION
  Report Type: Report from Study
  Country: DE (occurrence: DE)
  Receive Date: 20180730
  Receipt Date: 20181220
  Transmission Date: 20190204
  Serious: Yes (Death, Disabling, Congenital Anomaly, Other)
  Sender: FDA-Public Use
  Company Number: DE-SA-BI2016BI13338BI

PATIENT
  Sex: Female
  Weight: .06 kg

DRUGS (29)
  1. CLEXANE [Suspect]
     Active Substance: ENOXAPARIN SODIUM
     Dosage: FROM GESTATIONAL WEEK 0-14
     Route: 064
  2. PANTOPRAZOLE SODIUM. [Suspect]
     Active Substance: PANTOPRAZOLE SODIUM
     Dosage: UNK UNK,UNK
     Route: 064
  3. NICOTINE. [Suspect]
     Active Substance: NICOTINE
     Indication: FOETAL EXPOSURE DURING PREGNANCY
     Dosage: FROM GESTATIONAL WEEK 0-14
     Route: 064
  4. XARELTO [Suspect]
     Active Substance: RIVAROXABAN
     Indication: FOETAL EXPOSURE DURING PREGNANCY
     Dosage: FROM GESTATIONAL WEEK 0-5
     Route: 064
  5. PANTOPRAZOLE SODIUM. [Suspect]
     Active Substance: PANTOPRAZOLE SODIUM
     Indication: FOETAL EXPOSURE DURING PREGNANCY
     Dosage: FROM GESTATIONAL WEEK 0-14
     Route: 064
  6. TORASEMIDE [Suspect]
     Active Substance: TORSEMIDE
     Dosage: UNK UNK,UNK
     Route: 064
  7. HEPARIN [Suspect]
     Active Substance: HEPARIN SODIUM
     Indication: FOETAL EXPOSURE DURING PREGNANCY
     Dosage: UNK UNK,UNK
     Route: 064
  8. EZETIMIBE. [Suspect]
     Active Substance: EZETIMIBE
     Dosage: UNK UNK,UNK
     Route: 064
  9. HYDROXYCHLOROQUINE SULFATE. [Suspect]
     Active Substance: HYDROXYCHLOROQUINE SULFATE
     Indication: FOETAL EXPOSURE DURING PREGNANCY
     Dosage: UNK UNK,UNK
     Route: 064
  10. SALBUTAMOL SULFATE [Suspect]
     Active Substance: ALBUTEROL SULFATE
     Dosage: UNK UNK,UNK
  11. TACROLIMUS. [Suspect]
     Active Substance: TACROLIMUS
     Indication: EMBOLISM VENOUS
     Dosage: FROM GESTATIONAL WEEK 0-14
     Route: 064
  12. RAMIPRIL. [Suspect]
     Active Substance: RAMIPRIL
     Indication: FOETAL EXPOSURE DURING PREGNANCY
     Dosage: 20 MG, QD  FROM GESTATIONAL WEEK 0-113+6
     Route: 064
  13. BUSCO PANTOPRAZOLE [Suspect]
     Active Substance: PANTOPRAZOLE SODIUM
     Indication: FOETAL EXPOSURE DURING PREGNANCY
     Dosage: UNK UNK,UNK
     Route: 064
  14. ACETYLSALICYLIC ACID [Suspect]
     Active Substance: ASPIRIN
     Dosage: UNK UNK,UNK
     Route: 064
  15. TORASEMIDE [Suspect]
     Active Substance: TORSEMIDE
     Indication: FOETAL EXPOSURE DURING PREGNANCY
     Dosage: FROM GESTATIONAL WEEK 0-14
     Route: 064
  16. SALBUTAMOL SULFATE [Suspect]
     Active Substance: ALBUTEROL SULFATE
     Indication: FOETAL EXPOSURE DURING PREGNANCY
     Dosage: UNK UNK,UNK
     Route: 064
  17. EZETIMIBE. [Suspect]
     Active Substance: EZETIMIBE
     Indication: FOETAL EXPOSURE DURING PREGNANCY
     Dosage: FROM GESTATIONAL WEEK 0-14
     Route: 064
  18. SIMVASTATIN. [Suspect]
     Active Substance: SIMVASTATIN
     Indication: FOETAL EXPOSURE DURING PREGNANCY
     Dosage: FROM GESTATIONAL WEEK 0-14
     Route: 064
  19. TACROLIMUS. [Suspect]
     Active Substance: TACROLIMUS
     Indication: FOETAL EXPOSURE DURING PREGNANCY
  20. DALTEPARIN SODIUM [Suspect]
     Active Substance: DALTEPARIN SODIUM
     Dosage: UNK
     Route: 064
  21. HYDROXYCHLOROQUINE SULFATE. [Suspect]
     Active Substance: HYDROXYCHLOROQUINE SULFATE
     Dosage: UNK UNK,UNK
     Route: 064
  22. SIMVASTATIN. [Suspect]
     Active Substance: SIMVASTATIN
     Dosage: UNK UNK,UNK
     Route: 064
  23. PREDNISOLONE. [Suspect]
     Active Substance: PREDNISOLONE
     Indication: FOETAL EXPOSURE DURING PREGNANCY
     Dosage: FROM GESTATIONAL WEEK 0-14
     Route: 064
  24. PREDNISOLONE. [Suspect]
     Active Substance: PREDNISOLONE
     Dosage: UNK UNK,UNK
     Route: 064
  25. ACETYLSALICYLIC ACID [Suspect]
     Active Substance: ASPIRIN
     Indication: FOETAL EXPOSURE DURING PREGNANCY
     Dosage: FROM GESTATIONAL WEEK 0-14
     Route: 064
  26. ALISKIREN [Suspect]
     Active Substance: ALISKIREN
     Indication: FOETAL EXPOSURE DURING PREGNANCY
     Route: 064
  27. RITUXIMAB. [Suspect]
     Active Substance: RITUXIMAB
     Route: 064
  28. METAMIZOLE SODIUM [Suspect]
     Active Substance: METAMIZOLE SODIUM
     Indication: FOETAL EXPOSURE DURING PREGNANCY
     Dosage: FROM GESTATIONAL WEEK 0-14
     Route: 064
  29. TACROLIMUS. [Suspect]
     Active Substance: TACROLIMUS
     Indication: SYSTEMIC LUPUS ERYTHEMATOSUS
     Dosage: UNK UNK,UNK
     Route: 064

REACTIONS (9)
  - Cardiac septal defect [Fatal]
  - Congenital cardiovascular anomaly [Fatal]
  - Heart disease congenital [Fatal]
  - Ventricular septal defect [Fatal]
  - Premature baby [Unknown]
  - Truncus arteriosus persistent [Fatal]
  - Low birth weight baby [Unknown]
  - Abortion induced [Fatal]
  - Foetal exposure during pregnancy [Fatal]
